FAERS Safety Report 24402145 (Version 1)
Quarter: 2024Q4

REPORT INFORMATION
  Report Type: Spontaneous
  Country: CA (occurrence: CA)
  Receive Date: 20241007
  Receipt Date: 20241007
  Transmission Date: 20250115
  Serious: Yes (Hospitalization, Other)
  Sender: AUROBINDO
  Company Number: CA-AUROBINDO-AUR-APL-2024-047791

PATIENT
  Age: 70 Year
  Sex: Female

DRUGS (2)
  1. BENDAMUSTINE [Suspect]
     Active Substance: BENDAMUSTINE
     Indication: Product used for unknown indication
     Dosage: UNK
     Route: 065
  2. RITUXIMAB [Suspect]
     Active Substance: RITUXIMAB
     Indication: Product used for unknown indication
     Dosage: UNK
     Route: 065

REACTIONS (5)
  - Dermatitis exfoliative generalised [Unknown]
  - Septic shock [Unknown]
  - Beta haemolytic streptococcal infection [Unknown]
  - Serum sickness-like reaction [Unknown]
  - Intensive care [Unknown]
